FAERS Safety Report 9306334 (Version 2)
Quarter: 2013Q1

REPORT INFORMATION
  Report Type: Spontaneous
  Country: DE (occurrence: None)
  Receive Date: 20121218
  Receipt Date: 20121219
  Transmission Date: 20140127
  Serious: Yes (Other)
  Sender: FDA-Public Use
  Company Number: DE-010081

PATIENT
  Age: 40 Year
  Sex: Female

DRUGS (6)
  1. MENOGON [Suspect]
     Indication: ASSISTED FERTILISATION
     Route: 058
     Dates: start: 20120714, end: 20120718
  2. L-THYROXIN [Concomitant]
  3. FOLIC ACID [Concomitant]
  4. METFORMIN [Concomitant]
  5. METRELEF [Concomitant]
  6. CHORIONIC GONADOTROPIN [Concomitant]

REACTIONS (2)
  - Petechiae [None]
  - Ovarian hyperstimulation syndrome [None]
